FAERS Safety Report 23205260 (Version 2)
Quarter: 2023Q4

REPORT INFORMATION
  Report Type: Spontaneous
  Country: US (occurrence: US)
  Receive Date: 20231120
  Receipt Date: 20231128
  Transmission Date: 20240109
  Serious: No
  Sender: FDA-Public Use
  Company Number: US-PFIZER INC-2021194645

PATIENT
  Age: 81 Year
  Sex: Female
  Weight: 101.6 kg

DRUGS (1)
  1. PREMARIN [Suspect]
     Active Substance: ESTROGENS, CONJUGATED
     Dosage: 1 GRAM PER VAGINA 2-3 TIMES WEEKLY
     Route: 067

REACTIONS (1)
  - Off label use [Unknown]
